FAERS Safety Report 23175809 (Version 3)
Quarter: 2023Q4

REPORT INFORMATION
  Report Type: Spontaneous
  Country: US (occurrence: None)
  Receive Date: 20231113
  Receipt Date: 20231212
  Transmission Date: 20240109
  Serious: No
  Sender: FDA-Public Use
  Company Number: 2023A250134

PATIENT
  Age: 19362 Day
  Sex: Male

DRUGS (3)
  1. TEZSPIRE [Suspect]
     Active Substance: TEZEPELUMAB-EKKO
     Indication: Hypersensitivity
     Route: 058
     Dates: start: 20230101
  2. TEZSPIRE [Suspect]
     Active Substance: TEZEPELUMAB-EKKO
     Indication: Multiple allergies
     Route: 058
     Dates: start: 20230101
  3. FASENRA [Concomitant]
     Active Substance: BENRALIZUMAB
     Indication: Asthma
     Route: 058

REACTIONS (6)
  - Injection site haemorrhage [Unknown]
  - Injection site pain [Unknown]
  - Injection site discharge [Unknown]
  - Drug dose omission by device [Unknown]
  - Device issue [Unknown]
  - Multiple use of single-use product [Unknown]

NARRATIVE: CASE EVENT DATE: 20231031
